FAERS Safety Report 8111295-5 (Version None)
Quarter: 2012Q1

REPORT INFORMATION
  Report Type: 
  Country: None (occurrence: None)
  Receive Date: 20120203
  Receipt Date: 20110815
  Transmission Date: 20120608
  Serious: No
  Sender: FDA-Public Use
  Company Number: US-GLAXOSMITHKLINE-A0941086A

PATIENT
  Age: 66 Year
  Sex: Female

DRUGS (5)
  1. CALCIUM [Concomitant]
  2. LEVOTHROID [Concomitant]
  3. VITAMIN TAB [Concomitant]
  4. IRON TABLETS [Concomitant]
  5. LAMICTAL [Suspect]
     Indication: MENTAL DISORDER
     Dosage: 40MG PER DAY
     Route: 048
     Dates: start: 20040801

REACTIONS (7)
  - BALANCE DISORDER [None]
  - AGITATION [None]
  - ANXIETY [None]
  - VISION BLURRED [None]
  - TREMOR [None]
  - NAUSEA [None]
  - RASH PRURITIC [None]
